FAERS Safety Report 6307325-3 (Version None)
Quarter: 2009Q3

REPORT INFORMATION
  Report Type: 
  Country: None (occurrence: None)
  Receive Date: 20090811
  Receipt Date: 20090710
  Transmission Date: 20100115
  Serious: No
  Sender: FDA-Public Use
  Company Number: 1000007448

PATIENT
  Sex: Female

DRUGS (1)
  1. SAVELLA [Suspect]

REACTIONS (3)
  - FEELING JITTERY [None]
  - PRURITUS [None]
  - PSYCHOMOTOR HYPERACTIVITY [None]
